FAERS Safety Report 4925002-8 (Version None)
Quarter: 2006Q1

REPORT INFORMATION
  Report Type: 
  Country: None (occurrence: None)
  Receive Date: 20060222
  Receipt Date: 20060214
  Transmission Date: 20060701
  Serious: Yes (Hospitalization, Other)
  Sender: FDA-Public Use
  Company Number: 2006BI002672

PATIENT
  Age: 35 Year
  Sex: Female

DRUGS (2)
  1. AVONEX [Suspect]
     Indication: MULTIPLE SCLEROSIS
     Dosage: 30 UG;QW;IM
     Route: 030
     Dates: start: 19990601, end: 20020108
  2. AVONEX [Suspect]
     Indication: MULTIPLE SCLEROSIS
     Dosage: 30 UG;QW;IM
     Route: 030
     Dates: start: 20050128

REACTIONS (6)
  - BACK PAIN [None]
  - COLLAPSE OF LUNG [None]
  - INTERVERTEBRAL DISC DISORDER [None]
  - NERVE COMPRESSION [None]
  - PROCEDURAL COMPLICATION [None]
  - RIB FRACTURE [None]
